FAERS Safety Report 10165804 (Version 1)
Quarter: 2014Q2

REPORT INFORMATION
  Report Type: Spontaneous
  Country: US (occurrence: US)
  Receive Date: 20140510
  Receipt Date: 20140510
  Transmission Date: 20141212
  Serious: No
  Sender: FDA-Public Use
  Company Number: US-BRISTOL-MYERS SQUIBB COMPANY-19941582

PATIENT
  Age: 62 Year
  Sex: Male

DRUGS (13)
  1. BYDUREON [Suspect]
  2. VITAMIN D3 [Concomitant]
  3. VITAMIN B12 [Concomitant]
     Dosage: 1DF:1000 UNIT NOS
  4. ALPHA LIPONACID [Concomitant]
  5. BABY ASPIRIN [Concomitant]
  6. BISOPROLOL FUMARATE [Concomitant]
  7. METFORMIN [Concomitant]
  8. WELCHOL [Concomitant]
  9. CRESTOR [Concomitant]
  10. RAPAFLO [Concomitant]
  11. SLO-NIACIN [Concomitant]
  12. LANTUS [Concomitant]
  13. ZETIA [Concomitant]

REACTIONS (1)
  - Injection site swelling [Unknown]
